FAERS Safety Report 23574858 (Version 1)
Quarter: 2024Q1

REPORT INFORMATION
  Report Type: Spontaneous
  Country: DE (occurrence: DE)
  Receive Date: 20240228
  Receipt Date: 20240228
  Transmission Date: 20240409
  Serious: Yes (Other)
  Sender: FDA-Public Use
  Company Number: DE-LEO Pharma-367981

PATIENT
  Age: 30 Year
  Sex: Male

DRUGS (1)
  1. BRODALUMAB [Suspect]
     Active Substance: BRODALUMAB
     Indication: Psoriasis
     Dosage: NO POSOLOGY INFORMATION REPORTED.
     Route: 065
     Dates: start: 2021

REACTIONS (1)
  - Psoriatic arthropathy [Unknown]
